FAERS Safety Report 7583073-7 (Version None)
Quarter: 2011Q2

REPORT INFORMATION
  Report Type: 
  Country: None (occurrence: None)
  Receive Date: 20110630
  Receipt Date: 20110627
  Transmission Date: 20111010
  Serious: Yes (Hospitalization, Other)
  Sender: FDA-Public Use
  Company Number: KR-JNJFOC-20110612185

PATIENT
  Age: 61 Year
  Sex: Female
  Weight: 43 kg

DRUGS (13)
  1. RIFAMPICIN [Suspect]
     Indication: TUBERCULOSIS
     Route: 065
     Dates: start: 20110120, end: 20110322
  2. ETHAMBUTOL HYDROCHLORIDE [Suspect]
     Indication: TUBERCULOSIS
     Route: 065
     Dates: start: 20110120, end: 20110322
  3. ETHAMBUTOL HYDROCHLORIDE [Suspect]
     Route: 065
     Dates: start: 20110411, end: 20110412
  4. PYRAZINAMIDE [Suspect]
     Indication: TUBERCULOSIS
     Route: 065
  5. STREPTOMYCIN [Suspect]
     Indication: TUBERCULOSIS
     Route: 030
     Dates: start: 20110411, end: 20110412
  6. STREPTOMYCIN [Suspect]
     Route: 030
     Dates: start: 20110120, end: 20110322
  7. LEVOFLOXACIN [Suspect]
     Route: 042
     Dates: start: 20110411, end: 20110412
  8. LEVOFLOXACIN [Suspect]
     Indication: TUBERCULOSIS
     Route: 042
     Dates: start: 20110120, end: 20110322
  9. ISONIAZID [Suspect]
     Indication: TUBERCULOSIS
     Route: 065
  10. AMIKACIN [Suspect]
     Indication: TUBERCULOSIS
     Route: 042
  11. PYRIDOXINE HCL [Suspect]
     Indication: TUBERCULOSIS
     Route: 065
  12. BISOPROLOL FUMARATE [Concomitant]
     Indication: PRODUCT USED FOR UNKNOWN INDICATION
     Route: 065
     Dates: start: 20101018
  13. OMEPRAZOLE [Concomitant]
     Indication: PRODUCT USED FOR UNKNOWN INDICATION
     Route: 065
     Dates: start: 20101213

REACTIONS (2)
  - DRUG RASH WITH EOSINOPHILIA AND SYSTEMIC SYMPTOMS [None]
  - HEPATOTOXICITY [None]
